FAERS Safety Report 5722542-9 (Version None)
Quarter: 2008Q2

REPORT INFORMATION
  Report Type: 
  Country: None (occurrence: None)
  Receive Date: 20080425
  Receipt Date: 20080414
  Transmission Date: 20081010
  Serious: Yes (Other)
  Sender: FDA-Public Use
  Company Number: 8031669

PATIENT
  Age: 56 Year
  Sex: Male
  Weight: 95.4 kg

DRUGS (9)
  1. KEPPRA [Suspect]
     Indication: PARTIAL SEIZURES
     Dosage: 500 MG 2/D PO
     Route: 048
     Dates: start: 20070801, end: 20080303
  2. KEPPRA [Suspect]
     Indication: PARTIAL SEIZURES
     Dosage: 2000 MG 2/D PO
     Route: 048
     Dates: start: 20080303
  3. DAPSONE [Concomitant]
  4. CIPRO [Concomitant]
  5. RIFAMPIN [Concomitant]
  6. OTC SUPPLEMENT [Concomitant]
  7. DECADRON [Concomitant]
  8. TEMODAR [Concomitant]
  9. SUPPLEMENTS FROM INTEGRATIVE CANCER CENTER (NOS) [Concomitant]

REACTIONS (4)
  - ATAXIA [None]
  - CONVULSION [None]
  - INCISION SITE INFECTION [None]
  - THINKING ABNORMAL [None]
